FAERS Safety Report 4737803-X (Version None)
Quarter: 2005Q3

REPORT INFORMATION
  Report Type: 
  Country: None (occurrence: None)
  Receive Date: 20050805
  Receipt Date: 20050723
  Transmission Date: 20060218
  Serious: Yes (Hospitalization)
  Sender: FDA-Public Use
  Company Number: 2005PV000513

PATIENT
  Age: 49 Year
  Sex: Female
  Weight: 102.9665 kg

DRUGS (7)
  1. BYETTA [Suspect]
     Indication: DIABETES MELLITUS
     Dosage: 4 UG; BID; SC
     Route: 058
     Dates: start: 20050721, end: 20050723
  2. AMARYL [Concomitant]
  3. VYTORIN [Concomitant]
  4. MAVIK [Concomitant]
  5. VITAMINS [Concomitant]
  6. LANTUS [Concomitant]
  7. HUMULIN R [Concomitant]

REACTIONS (3)
  - DEHYDRATION [None]
  - DIABETIC KETOACIDOSIS [None]
  - RETCHING [None]
